FAERS Safety Report 14372135 (Version 1)
Quarter: 2018Q1

REPORT INFORMATION
  Report Type: Other
  Country: PL (occurrence: PL)
  Receive Date: 20180110
  Receipt Date: 20180110
  Transmission Date: 20180509
  Serious: Yes (Hospitalization, Other)
  Sender: FDA-Public Use
  Company Number: PL-MIST-TIR-2017-1211

PATIENT
  Age: 81 Year
  Sex: Female

DRUGS (14)
  1. PANTOPRAZOLE [Suspect]
     Active Substance: PANTOPRAZOLE
     Indication: PRODUCT USED FOR UNKNOWN INDICATION
     Dosage: 20MG DAILY
     Route: 065
  2. AMIODARONE [Suspect]
     Active Substance: AMIODARONE
     Indication: PRODUCT USED FOR UNKNOWN INDICATION
     Dosage: 200MG DAILY 5 DAYS PER WEEK
     Route: 065
  3. CIPROFLOXACIN. [Suspect]
     Active Substance: CIPROFLOXACIN
     Indication: PRODUCT USED FOR UNKNOWN INDICATION
     Dosage: 200MG TWICE DAILY
     Route: 042
  4. ENCORTON [Suspect]
     Active Substance: PREDNISONE
     Indication: PRODUCT USED FOR UNKNOWN INDICATION
     Dosage: 20MG DAILY
     Route: 065
  5. ENCORTON [Suspect]
     Active Substance: PREDNISONE
     Dosage: 10MG DAILY
     Route: 065
  6. FUROSEMIDE. [Suspect]
     Active Substance: FUROSEMIDE
     Indication: PRODUCT USED FOR UNKNOWN INDICATION
     Dosage: 40MG DAILY
     Route: 065
  7. VITAMIN D [Concomitant]
     Active Substance: CHOLECALCIFEROL
     Indication: PRODUCT USED FOR UNKNOWN INDICATION
     Route: 065
  8. ENCORTON [Suspect]
     Active Substance: PREDNISONE
     Dosage: 30MG DAILY
     Route: 065
  9. CARVEDILOL. [Suspect]
     Active Substance: CARVEDILOL
     Indication: PRODUCT USED FOR UNKNOWN INDICATION
     Dosage: 12.5MG DAILY
     Route: 065
  10. CALCIUM [Concomitant]
     Active Substance: CALCIUM
     Indication: PRODUCT USED FOR UNKNOWN INDICATION
     Route: 065
  11. LEVOTHYROXINE. [Suspect]
     Active Substance: LEVOTHYROXINE
     Indication: PRODUCT USED FOR UNKNOWN INDICATION
     Dosage: 25MCG DAILY
     Route: 065
  12. RIVAROXABAN [Suspect]
     Active Substance: RIVAROXABAN
     Indication: PRODUCT USED FOR UNKNOWN INDICATION
     Dosage: 15MG DAILY
     Route: 065
  13. CARVEDILOL. [Suspect]
     Active Substance: CARVEDILOL
     Dosage: 18.75MG DAILY
     Route: 065
  14. HEPARIN SULFATE [Suspect]
     Active Substance: SODIUM HEPARAN SULFATE (PORCINE; 5500 MW)
     Indication: PRODUCT USED FOR UNKNOWN INDICATION
     Dosage: 0.4ML DAILY
     Route: 065

REACTIONS (11)
  - Dyspnoea [Unknown]
  - Palpitations [Unknown]
  - Pneumonia [Unknown]
  - Atrial fibrillation [Unknown]
  - Cough [Unknown]
  - Diarrhoea [Unknown]
  - Oedema peripheral [Unknown]
  - Oliguria [Unknown]
  - Fatigue [Unknown]
  - Exercise tolerance decreased [Unknown]
  - Pulmonary toxicity [Unknown]
